FAERS Safety Report 22278615 (Version 1)
Quarter: 2023Q2

REPORT INFORMATION
  Report Type: Spontaneous
  Country: US (occurrence: US)
  Receive Date: 20230503
  Receipt Date: 20230503
  Transmission Date: 20230721
  Serious: No
  Sender: FDA-Public Use
  Company Number: US-ABBVIE-4733164

PATIENT
  Sex: Female

DRUGS (1)
  1. HUMIRA [Suspect]
     Active Substance: ADALIMUMAB
     Indication: Product used for unknown indication
     Dosage: DRUG START DATE: OVER 1 YEAR
     Route: 058

REACTIONS (3)
  - Injection site erythema [Unknown]
  - Pruritus [Unknown]
  - Injection site urticaria [Unknown]
